FAERS Safety Report 5962239-3 (Version None)
Quarter: 2008Q4

REPORT INFORMATION
  Report Type: 
  Country: None (occurrence: None)
  Receive Date: 20081121
  Receipt Date: 20081118
  Transmission Date: 20090506
  Serious: No
  Sender: FDA-Public Use
  Company Number: US-B.I. PHARMACEUTICALS,INC./RIDGEFIELD-2008-BP-17484BP

PATIENT
  Sex: Female

DRUGS (6)
  1. SPIRIVA [Suspect]
     Indication: CHRONIC OBSTRUCTIVE PULMONARY DISEASE
     Dosage: 18MCG
     Route: 055
     Dates: start: 20070101
  2. ADVAIR HFA [Concomitant]
     Dates: end: 20070101
  3. SIMVASTATIN [Concomitant]
  4. GABAPENTIN [Concomitant]
  5. LEVOXYL [Concomitant]
  6. METOPROLOL [Concomitant]

REACTIONS (2)
  - RETINAL OPERATION [None]
  - VISION BLURRED [None]
